FAERS Safety Report 25412544 (Version 3)
Quarter: 2025Q3

REPORT INFORMATION
  Report Type: Spontaneous
  Country: KR (occurrence: KR)
  Receive Date: 20250609
  Receipt Date: 20250729
  Transmission Date: 20251020
  Serious: Yes (Hospitalization)
  Sender: MYLAN
  Company Number: KR-MYLANLABS-2025M1047087

PATIENT
  Sex: Female

DRUGS (5)
  1. CLOZARIL [Suspect]
     Active Substance: CLOZAPINE
     Indication: Schizoaffective disorder
  2. CLOZARIL [Suspect]
     Active Substance: CLOZAPINE
  3. VALPROATE [Concomitant]
     Active Substance: VALPROIC ACID
  4. QUETIAPINE [Concomitant]
     Active Substance: QUETIAPINE
  5. TRIAZOLAM [Concomitant]
     Active Substance: TRIAZOLAM

REACTIONS (2)
  - Delusion [Unknown]
  - Off label use [Unknown]
